FAERS Safety Report 4371103-5 (Version None)
Quarter: 2004Q2

REPORT INFORMATION
  Report Type: 
  Country: None (occurrence: None)
  Receive Date: 20040601
  Receipt Date: 20040419
  Transmission Date: 20050107
  Serious: Yes (Hospitalization)
  Sender: FDA-Public Use
  Company Number: 2004008216

PATIENT
  Age: 70 Year
  Sex: Male

DRUGS (5)
  1. LIPITOR [Suspect]
     Indication: METABOLIC DISORDER
     Dosage: 10 MG DAILY ORAL
     Route: 048
     Dates: end: 20030218
  2. QUINAPRIL HYDROCHLORIDE [Concomitant]
  3. AMLODIPINE BESYLATE [Concomitant]
  4. QUININE SULFATE [Concomitant]
  5. ASPIRIN [Concomitant]

REACTIONS (4)
  - ASTHENIA [None]
  - FALL [None]
  - MOBILITY DECREASED [None]
  - RHABDOMYOLYSIS [None]
